FAERS Safety Report 5336877-5 (Version None)
Quarter: 2007Q2

REPORT INFORMATION
  Report Type: 
  Country: None (occurrence: None)
  Receive Date: 20070524
  Receipt Date: 20070524
  Transmission Date: 20071010
  Serious: Yes (Other)
  Sender: FDA-Public Use
  Company Number: None

PATIENT
  Age: 53 Year
  Sex: Female
  Weight: 77.1115 kg

DRUGS (5)
  1. LYRICA [Suspect]
     Indication: BACK PAIN
     Dosage: 1 TABLET EACH NIGHT DAILY PO
     Route: 048
     Dates: start: 20070401, end: 20070530
  2. LYRICA [Suspect]
     Indication: INTERVERTEBRAL DISC PROTRUSION
     Dosage: 1 TABLET EACH NIGHT DAILY PO
     Route: 048
     Dates: start: 20070401, end: 20070530
  3. DIVALPROEX SODIUM [Concomitant]
  4. SEROQUEL [Concomitant]
  5. IMODIUM [Concomitant]

REACTIONS (3)
  - DIARRHOEA [None]
  - FAECAL INCONTINENCE [None]
  - URINARY INCONTINENCE [None]
